FAERS Safety Report 18773825 (Version 1)
Quarter: 2021Q1

REPORT INFORMATION
  Report Type: Spontaneous
  Country: US (occurrence: US)
  Receive Date: 20210122
  Receipt Date: 20210122
  Transmission Date: 20210419
  Serious: Yes (Hospitalization)
  Sender: FDA-Public Use
  Company Number: None

PATIENT
  Age: 71 Year
  Sex: Male
  Weight: 94.3 kg

DRUGS (1)
  1. BAMLANIVIMAB. [Suspect]
     Active Substance: BAMLANIVIMAB
     Indication: COVID-19
     Dosage: ?          OTHER FREQUENCY:ONCE;?
     Route: 042

REACTIONS (6)
  - Hypotension [None]
  - Shock [None]
  - Chills [None]
  - Tachypnoea [None]
  - Tachycardia [None]
  - Oxygen saturation decreased [None]

NARRATIVE: CASE EVENT DATE: 20210121
